FAERS Safety Report 5232943-3 (Version None)
Quarter: 2007Q1

REPORT INFORMATION
  Report Type: 
  Country: None (occurrence: None)
  Receive Date: 20061201
  Receipt Date: 20060921
  Transmission Date: 20070707
  Serious: No
  Sender: FDA-Public Use
  Company Number: 2006PV021737

PATIENT
  Age: 74 Year
  Sex: Male
  Weight: 144.2439 kg

DRUGS (4)
  1. BYETTA [Suspect]
     Indication: DIABETES MELLITUS NON-INSULIN-DEPENDENT
     Dosage: 5 MCG;BID;SC
     Route: 058
     Dates: start: 20060830
  2. HUMALOG 75/20 [Concomitant]
  3. AVANDIA [Concomitant]
  4. CYMBALTA [Concomitant]

REACTIONS (3)
  - CONSTIPATION [None]
  - FLATULENCE [None]
  - WEIGHT DECREASED [None]
